FAERS Safety Report 17942163 (Version 2)
Quarter: 2020Q3

REPORT INFORMATION
  Report Type: Spontaneous
  Country: US (occurrence: US)
  Receive Date: 20200625
  Receipt Date: 20200717
  Transmission Date: 20201103
  Serious: No
  Sender: FDA-Public Use
  Company Number: US-SA-2020SA162525

PATIENT

DRUGS (1)
  1. ZANTAC 150 MAXIMUM STRENGTH [Suspect]
     Active Substance: RANITIDINE HYDROCHLORIDE
     Indication: GASTRIC DISORDER
     Dosage: 150 MG, QD
     Dates: start: 201901, end: 2019

REACTIONS (4)
  - Bladder pain [Unknown]
  - Bladder disorder [Unknown]
  - Flank pain [Unknown]
  - Back pain [Unknown]

NARRATIVE: CASE EVENT DATE: 201901
